FAERS Safety Report 19147135 (Version 1)
Quarter: 2021Q2

REPORT INFORMATION
  Report Type: Spontaneous
  Country: GB (occurrence: GB)
  Receive Date: 20210416
  Receipt Date: 20210416
  Transmission Date: 20210717
  Serious: Yes (Disabling)
  Sender: FDA-Public Use
  Company Number: GB-MYLANLABS-2021M1020856

PATIENT
  Age: 35 Year
  Sex: Male
  Weight: 54.88 kg

DRUGS (2)
  1. OFLOXACIN. [Suspect]
     Active Substance: OFLOXACIN
     Indication: ILL-DEFINED DISORDER
     Dosage: 400 MILLIGRAM, QD
     Route: 048
     Dates: start: 20210309, end: 20210330
  2. CIPROFLOXACIN. [Suspect]
     Active Substance: CIPROFLOXACIN
     Indication: ILL-DEFINED DISORDER
     Dosage: 500 MILLIGRAM, BID (500MG,TWICE A DAY)
     Route: 048
     Dates: start: 20210329, end: 20210331

REACTIONS (6)
  - Pain [Not Recovered/Not Resolved]
  - Adverse event [Not Recovered/Not Resolved]
  - Product use issue [Unknown]
  - Asthenia [Not Recovered/Not Resolved]
  - Paraesthesia [Not Recovered/Not Resolved]
  - Fatigue [Not Recovered/Not Resolved]
